FAERS Safety Report 5340471-X (Version None)
Quarter: 2007Q2

REPORT INFORMATION
  Report Type: 
  Country: None (occurrence: None)
  Receive Date: 20070531
  Receipt Date: 20070521
  Transmission Date: 20071010
  Serious: Yes (Hospitalization, Disabling, Other)
  Sender: FDA-Public Use
  Company Number: US-PFIZER INC-2005136723

PATIENT
  Sex: Male
  Weight: 104.3 kg

DRUGS (2)
  1. BEXTRA [Suspect]
     Indication: NECK PAIN
  2. BEXTRA [Suspect]
     Indication: BACK PAIN

REACTIONS (11)
  - CORONARY ARTERY OCCLUSION [None]
  - CORONARY ARTERY THROMBOSIS [None]
  - DEPRESSION [None]
  - DRUG DEPENDENCE [None]
  - EJECTION FRACTION DECREASED [None]
  - FATIGUE [None]
  - HYPOAESTHESIA [None]
  - IMPAIRED WORK ABILITY [None]
  - MYOCARDIAL INFARCTION [None]
  - PAIN IN EXTREMITY [None]
  - RASH [None]
